FAERS Safety Report 5880085-6 (Version None)
Quarter: 2008Q3

REPORT INFORMATION
  Report Type: 
  Country: None (occurrence: None)
  Receive Date: 20080911
  Receipt Date: 20080911
  Transmission Date: 20090109
  Serious: No
  Sender: FDA-Public Use
  Company Number: None

PATIENT
  Age: 79 Year
  Sex: Male

DRUGS (4)
  1. WARFARIN SODIUM [Suspect]
     Indication: CARDIOVASCULAR DISORDER
     Dosage: 2.5 MG QPM PO
     Route: 048
     Dates: start: 20060829, end: 20070108
  2. WARFARIN SODIUM [Suspect]
     Indication: SURGERY
     Dosage: 2.5 MG QPM PO
     Route: 048
     Dates: start: 20060829, end: 20070108
  3. WARFARIN SODIUM [Suspect]
     Indication: CARDIOVASCULAR DISORDER
     Dosage: 1.0 MG QPM PO
     Route: 048
     Dates: start: 20060829, end: 20070108
  4. WARFARIN SODIUM [Suspect]
     Indication: SURGERY
     Dosage: 1.0 MG QPM PO
     Route: 048
     Dates: start: 20060829, end: 20070108

REACTIONS (1)
  - INTERNATIONAL NORMALISED RATIO ABNORMAL [None]
